FAERS Safety Report 8338581-8 (Version None)
Quarter: 2012Q2

REPORT INFORMATION
  Report Type: 
  Country: None (occurrence: None)
  Receive Date: 20120504
  Receipt Date: 20120502
  Transmission Date: 20120825
  Serious: Yes (Life-Threatening, Hospitalization)
  Sender: FDA-Public Use
  Company Number: TR-ABBOTT-12P-161-0931955-00

PATIENT
  Age: 30 Year
  Sex: Female

DRUGS (1)
  1. VALPROATE SODIUM [Suspect]
     Indication: EPILEPSY
     Dosage: DAILY
     Route: 065

REACTIONS (7)
  - PULMONARY EMBOLISM [None]
  - RIGHT VENTRICULAR HYPERTROPHY [None]
  - DYSPNOEA [None]
  - FATIGUE [None]
  - PRESYNCOPE [None]
  - PALPITATIONS [None]
  - PULMONARY HYPERTENSION [None]
